FAERS Safety Report 18213598 (Version 4)
Quarter: 2021Q2

REPORT INFORMATION
  Report Type: Spontaneous
  Country: US (occurrence: US)
  Receive Date: 20200831
  Receipt Date: 20210520
  Transmission Date: 20210717
  Serious: Yes (Life-Threatening, Other)
  Sender: FDA-Public Use
  Company Number: US-PFIZER INC-2020336441

PATIENT
  Age: 66 Year
  Sex: Female
  Weight: 117.93 kg

DRUGS (1)
  1. CELECOXIB. [Suspect]
     Active Substance: CELECOXIB
     Indication: ARTHRITIS
     Dosage: UNK

REACTIONS (13)
  - Fear [Unknown]
  - Swelling [Recovered/Resolved]
  - Rash [Recovered/Resolved]
  - Feeling abnormal [Unknown]
  - Oral herpes [Recovered/Resolved]
  - Pruritus [Unknown]
  - Hyperhidrosis [Unknown]
  - Swelling face [Unknown]
  - Intentional product misuse [Unknown]
  - Drug hypersensitivity [Unknown]
  - Erythema [Unknown]
  - Scab [Unknown]
  - Deformity [Unknown]
